FAERS Safety Report 8721081 (Version 2)
Quarter: 2012Q4

REPORT INFORMATION
  Report Type: Report from Study
  Country: JP (occurrence: JP)
  Receive Date: 20120813
  Receipt Date: 20121004
  Transmission Date: 20130627
  Serious: Yes (Hospitalization)
  Sender: FDA-Public Use
  Company Number: JP-009507513-1208JPN005180

PATIENT
  Age: 67 Year
  Sex: Male
  Weight: 72 kg

DRUGS (11)
  1. PEGINTRON [Suspect]
     Indication: HEPATITIS C
     Dosage: 1.4mcg/kg/week
     Route: 058
     Dates: start: 20120309
  2. PEGINTRON [Suspect]
     Indication: HEPATITIS C
     Dosage: 1.5mcg/kg/week
     Route: 058
     Dates: end: 20120509
  3. PEGINTRON [Suspect]
     Dosage: 0.75mcg/kg/week
     Route: 058
     Dates: start: 20120510, end: 20120513
  4. REBETOL [Suspect]
     Indication: HEPATITIS C
     Route: 048
     Dates: start: 20120309, end: 20120502
  5. REBETOL [Suspect]
     Indication: HEPATITIS C
     Route: 048
     Dates: start: 20120503, end: 20120513
  6. TELAVIC [Suspect]
     Indication: HEPATITIS C
     Route: 048
     Dates: start: 20120309, end: 20120513
  7. URSO [Concomitant]
     Indication: HEPATITIS C
     Route: 048
  8. NORVASC [Concomitant]
     Route: 048
  9. TAKEPRON [Concomitant]
     Route: 048
     Dates: end: 20120509
  10. HARNAL [Concomitant]
     Route: 048
  11. TANATRIL [Concomitant]
     Route: 048

REACTIONS (4)
  - Pleural effusion [Recovering/Resolving]
  - Blood creatinine increased [None]
  - Blood uric acid increased [None]
  - Abdominal discomfort [None]
